FAERS Safety Report 19471579 (Version 1)
Quarter: 2021Q2

REPORT INFORMATION
  Report Type: Spontaneous
  Country: US (occurrence: US)
  Receive Date: 20210629
  Receipt Date: 20210629
  Transmission Date: 20210717
  Serious: Yes (Other)
  Sender: FDA-Public Use
  Company Number: US-SUN PHARMACEUTICAL INDUSTRIES LTD-2021R1-301797

PATIENT
  Age: 69 Year
  Sex: Male

DRUGS (9)
  1. ROPINIROLE. [Suspect]
     Active Substance: ROPINIROLE
     Indication: RESTLESS LEGS SYNDROME
     Dosage: 0.5 MG BEFORE BEDTIME
     Route: 065
  2. ROPINIROLE. [Suspect]
     Active Substance: ROPINIROLE
     Dosage: 6 MILLIGRAM, DAILY
     Route: 065
  3. GABAPENTIN. [Concomitant]
     Active Substance: GABAPENTIN
     Indication: RESTLESS LEGS SYNDROME
     Dosage: 800 MG/3200 MG , UNK
     Route: 065
  4. GABAPENTIN. [Concomitant]
     Active Substance: GABAPENTIN
     Dosage: 1600 MG , UNK
     Route: 065
  5. CARBIDOPA / LEVODOPA [Suspect]
     Active Substance: CARBIDOPA\LEVODOPA
     Indication: RESTLESS LEGS SYNDROME
     Dosage: UNK
     Route: 065
  6. ROPINIROLE. [Suspect]
     Active Substance: ROPINIROLE
     Dosage: 8 MILLIGRAM, TID
     Route: 065
  7. CODEINE [Concomitant]
     Active Substance: CODEINE
     Indication: RESTLESS LEGS SYNDROME
     Dosage: 30 MG AT BEDTIME
     Route: 065
  8. CARBIDOPA / LEVODOPA [Suspect]
     Active Substance: CARBIDOPA\LEVODOPA
     Dosage: UNK , TWICE DAILY
     Route: 065
  9. GABAPENTIN. [Concomitant]
     Active Substance: GABAPENTIN
     Dosage: 800 MG/1600 MG , UNK
     Route: 065

REACTIONS (2)
  - Drug ineffective [Unknown]
  - Condition aggravated [Unknown]
